FAERS Safety Report 9167820 (Version 1)
Quarter: 2013Q1

REPORT INFORMATION
  Report Type: Spontaneous
  Country: US (occurrence: US)
  Receive Date: 20130318
  Receipt Date: 20130318
  Transmission Date: 20140127
  Serious: Yes (Death)
  Sender: FDA-Public Use
  Company Number: PHEH2013US006191

PATIENT
  Sex: Female

DRUGS (4)
  1. AFINITOR [Suspect]
     Dosage: 10 MG, QD
     Route: 048
  2. SANDOSTATIN [Concomitant]
     Dosage: 100 UG
  3. CARVEDILOL [Concomitant]
     Dosage: 25 MG
  4. BABY ASPIRIN [Concomitant]
     Dosage: 81 MG

REACTIONS (1)
  - Death [Fatal]
